FAERS Safety Report 25908221 (Version 1)
Quarter: 2025Q4

REPORT INFORMATION
  Report Type: Spontaneous
  Country: US (occurrence: US)
  Receive Date: 20251010
  Receipt Date: 20251010
  Transmission Date: 20260117
  Serious: Yes (Hospitalization, Other)
  Sender: MERCK SHARP & DOHME LLC
  Company Number: US-009507513-2337637

PATIENT
  Age: 69 Year
  Sex: Female

DRUGS (1)
  1. KEYTRUDA [Suspect]
     Active Substance: PEMBROLIZUMAB
     Indication: Renal cancer
     Dates: start: 20250820, end: 20250820

REACTIONS (5)
  - Plasmapheresis [Unknown]
  - Myasthenia gravis [Unknown]
  - Myocarditis [Unknown]
  - Gastrointestinal tube insertion [Unknown]
  - Tracheostomy [Unknown]

NARRATIVE: CASE EVENT DATE: 20250905
